FAERS Safety Report 10025482 (Version 1)
Quarter: 2014Q1

REPORT INFORMATION
  Report Type: Spontaneous
  Country: BR (occurrence: BR)
  Receive Date: 20140320
  Receipt Date: 20140320
  Transmission Date: 20141002
  Serious: Yes (Other)
  Sender: FDA-Public Use
  Company Number: BR-ASTRAZENECA-2014SE17926

PATIENT
  Age: 25 Year
  Sex: Female

DRUGS (4)
  1. SEROQUEL [Suspect]
     Dosage: 3-4 TABLETS
     Route: 048
     Dates: start: 20140305, end: 20140305
  2. VENLAFAXINE HYDROCHLORIDE [Concomitant]
     Dosage: 3-4 TABLETS
     Route: 048
     Dates: start: 20140305, end: 20140305
  3. LITHIUM CARBONATE [Concomitant]
     Dosage: 3-4 TABLETS
     Route: 048
     Dates: start: 20140305, end: 20140305
  4. CLONAZEPAM [Concomitant]
     Route: 048
     Dates: start: 20140305, end: 20140305

REACTIONS (2)
  - Somnolence [Unknown]
  - Intentional drug misuse [Unknown]
